FAERS Safety Report 8318157-9 (Version None)
Quarter: 2012Q2

REPORT INFORMATION
  Report Type: 
  Country: None (occurrence: None)
  Receive Date: 20120427
  Receipt Date: 20120419
  Transmission Date: 20120825
  Serious: Yes (Other)
  Sender: FDA-Public Use
  Company Number: US-ROCHE-1061297

PATIENT
  Sex: Female

DRUGS (4)
  1. GEMCITABINE [Concomitant]
  2. NAVELBINE [Concomitant]
  3. TYKERB [Concomitant]
  4. HERCEPTIN [Suspect]
     Indication: BREAST CANCER METASTATIC

REACTIONS (1)
  - TERMINAL STATE [None]
